FAERS Safety Report 5146642-X (Version None)
Quarter: 2006Q4

REPORT INFORMATION
  Report Type: 
  Country: None (occurrence: None)
  Receive Date: 20061107
  Receipt Date: 20061107
  Transmission Date: 20070319
  Serious: Yes (Disabling)
  Sender: FDA-Public Use
  Company Number: None

PATIENT
  Age: 14 Year
  Sex: Male
  Weight: 135.1719 kg

DRUGS (1)
  1. SITREX - VINDEX PHARMACEUTICALS GIVEN SAMPLES [Suspect]
     Indication: SINUSITIS
     Dosage: 2 X'S A DAY EVERY 12 HR
     Dates: start: 20060825, end: 20060828

REACTIONS (5)
  - COLD SWEAT [None]
  - DYSURIA [None]
  - HYPOAESTHESIA [None]
  - MALAISE [None]
  - TREMOR [None]
